FAERS Safety Report 8468788 (Version 3)
Quarter: 2012Q4

REPORT INFORMATION
  Report Type: 
  Country: US (occurrence: US)
  Receive Date: 20120321
  Receipt Date: 20121116
  Transmission Date: 20130627
  Serious: Yes (Other)
  Sender: FDA-Public Use
  Company Number: US-ASTRAZENECA-2011SE32264

PATIENT
  Age: 39 Year
  Sex: Female
  Weight: 99.8 kg

DRUGS (26)
  1. NEXIUM [Suspect]
     Indication: GASTROOESOPHAGEAL REFLUX DISEASE
     Dosage: ONCE A DAY
     Route: 048
  2. NEXIUM [Suspect]
     Indication: GASTROOESOPHAGEAL REFLUX DISEASE
     Route: 048
     Dates: start: 2007, end: 2010
  3. NEXIUM [Suspect]
     Indication: GASTROOESOPHAGEAL REFLUX DISEASE
     Route: 048
     Dates: start: 20090618
  4. PREVACID [Concomitant]
  5. OMNIPRAZOLE [Concomitant]
  6. GAVISCON [Concomitant]
  7. VALTREX [Concomitant]
     Dates: start: 20110715
  8. WELLBUTRIN [Concomitant]
  9. ZOLOFT [Concomitant]
     Indication: DEPRESSION
  10. ZOLOFT [Concomitant]
     Indication: GENERALISED ANXIETY DISORDER
  11. ZOLOFT [Concomitant]
     Indication: BIPOLAR DISORDER
  12. VERAPAMIL [Concomitant]
  13. LORAZEPAM [Concomitant]
     Indication: DEPRESSION
  14. LORAZEPAM [Concomitant]
     Indication: GENERALISED ANXIETY DISORDER
  15. LORAZEPAM [Concomitant]
     Indication: BIPOLAR DISORDER
  16. PROZAC [Concomitant]
  17. LIKINOPRIL/LISINOPRIL [Concomitant]
     Dates: start: 20110715
  18. NORTRYTOLINE [Concomitant]
  19. CALCIUM CITRATE [Concomitant]
  20. LATUDA [Concomitant]
     Indication: DEPRESSION
  21. LATUDA [Concomitant]
     Indication: GENERALISED ANXIETY DISORDER
  22. LATUDA [Concomitant]
     Indication: BIPOLAR DISORDER
  23. BLACK COHOSH ROOT [Concomitant]
  24. PRISTIQ [Concomitant]
     Dates: start: 20110715
  25. NORTRIPTYLINE HCL [Concomitant]
     Dates: start: 20110715
  26. NAPROSYN [Concomitant]
     Route: 048
     Dates: start: 20110715

REACTIONS (5)
  - Stress fracture [Unknown]
  - Foot fracture [Unknown]
  - Plantar fasciitis [Unknown]
  - Pain in extremity [Unknown]
  - Osteoporosis [Unknown]
